FAERS Safety Report 8524276-4 (Version None)
Quarter: 2012Q3

REPORT INFORMATION
  Report Type: 
  Country: None (occurrence: None)
  Receive Date: 20120720
  Receipt Date: 20120713
  Transmission Date: 20120928
  Serious: Yes (Hospitalization)
  Sender: FDA-Public Use
  Company Number: DE-ABBOTT-12P-062-0944639-00

PATIENT
  Age: 73 Year
  Sex: Female
  Weight: 42 kg

DRUGS (2)
  1. METHOTREXATE [Suspect]
     Indication: PRODUCT USED FOR UNKNOWN INDICATION
     Dosage: ONCE WEEKLY, 7.5 MG ONCE WEEKLY
     Dates: start: 19940101, end: 20120601
  2. HUMIRA [Suspect]
     Indication: PRODUCT USED FOR UNKNOWN INDICATION
     Route: 058
     Dates: start: 20120308, end: 20120501

REACTIONS (7)
  - DYSPNOEA [None]
  - GENERAL PHYSICAL HEALTH DETERIORATION [None]
  - EPILEPSY [None]
  - SEPTIC ENCEPHALOPATHY [None]
  - ANAEMIA [None]
  - PNEUMOCOCCAL SEPSIS [None]
  - WEIGHT DECREASED [None]
